FAERS Safety Report 24201589 (Version 1)
Quarter: 2024Q3

REPORT INFORMATION
  Report Type: Spontaneous
  Country: MY (occurrence: None)
  Receive Date: 20240811
  Receipt Date: 20240811
  Transmission Date: 20241017
  Serious: Yes (Death, Life-Threatening, Hospitalization)
  Sender: Public
  Company Number: None

PATIENT
  Age: 86 Year
  Sex: Male

DRUGS (6)
  1. SKYRIZI [Suspect]
     Active Substance: RISANKIZUMAB-RZAA
     Indication: Skin disorder
     Route: 058
     Dates: start: 20240805
  2. PLAVIX [Concomitant]
     Active Substance: CLOPIDOGREL BISULFATE
  3. HOVASC [Concomitant]
  4. simvor simcastatin [Concomitant]
  5. ORALMET [Concomitant]
  6. benz-c double actionl lozenge (to relief cough) [Concomitant]

REACTIONS (10)
  - Discomfort [None]
  - Feeling abnormal [None]
  - Dyspnoea [None]
  - Dyspnoea [None]
  - Pain [None]
  - Oxygen saturation decreased [None]
  - Heart rate decreased [None]
  - Multiple organ dysfunction syndrome [None]
  - Near death experience [None]
  - Product complaint [None]

NARRATIVE: CASE EVENT DATE: 20240808
